FAERS Safety Report 5340549-0 (Version None)
Quarter: 2007Q2

REPORT INFORMATION
  Report Type: 
  Country: None (occurrence: None)
  Receive Date: 20070531
  Receipt Date: 20070523
  Transmission Date: 20071010
  Serious: Yes (Death)
  Sender: FDA-Public Use
  Company Number: IT-BRISTOL-MYERS SQUIBB COMPANY-13798558

PATIENT
  Age: 48 Year
  Sex: Female

DRUGS (1)
  1. ENDOXAN [Suspect]
     Indication: WEGENER'S GRANULOMATOSIS
     Route: 048
     Dates: start: 20070131, end: 20070307

REACTIONS (3)
  - APLASIA [None]
  - DEATH [None]
  - PYREXIA [None]
